FAERS Safety Report 21733670 (Version 1)
Quarter: 2022Q4

REPORT INFORMATION
  Report Type: Spontaneous
  Country: CN (occurrence: CN)
  Receive Date: 20221215
  Receipt Date: 20221215
  Transmission Date: 20230112
  Serious: Yes (Other)
  Sender: FDA-Public Use
  Company Number: CN-JNJFOC-20221221493

PATIENT
  Age: 8 Day
  Sex: Male
  Weight: 1.3 kg

DRUGS (1)
  1. CHILDRENS MOTRIN [Suspect]
     Active Substance: IBUPROFEN
     Indication: Neonatal respiratory failure
     Dosage: THE DOSES WERE 0.47 ML, 0.23 ML AND 0.23 ML, QD, RESPECTIVELY
     Route: 048
     Dates: start: 20221025, end: 20221027

REACTIONS (1)
  - Oliguria [Recovered/Resolved]

NARRATIVE: CASE EVENT DATE: 20221026
